FAERS Safety Report 8202495-4 (Version None)
Quarter: 2012Q1

REPORT INFORMATION
  Report Type: 
  Country: None (occurrence: None)
  Receive Date: 20120312
  Receipt Date: 20120302
  Transmission Date: 20120608
  Serious: Yes (Other)
  Sender: FDA-Public Use
  Company Number: US-JNJFOC-20120302349

PATIENT
  Sex: Female
  Weight: 151.96 kg

DRUGS (16)
  1. REMICADE [Suspect]
     Indication: RHEUMATOID ARTHRITIS
     Route: 042
     Dates: start: 20060101
  2. METHOTREXATE [Concomitant]
  3. HYDROCHLOROTHIAZIDE [Concomitant]
  4. TEKTURNA [Concomitant]
  5. FOLIC ACID [Concomitant]
  6. DIOVAN [Concomitant]
  7. CALCIUM [Concomitant]
  8. LYRICA [Concomitant]
  9. ASPIRIN [Concomitant]
  10. MULTIPLE VITAMIN [Concomitant]
  11. CLOTRIMAZOLE [Concomitant]
  12. ASCORBIC ACID [Concomitant]
  13. CELEBREX [Concomitant]
  14. SIMVASTATIN [Concomitant]
  15. FISH OIL [Concomitant]
  16. PRILOSEC [Concomitant]

REACTIONS (1)
  - MALIGNANT MELANOMA [None]
